FAERS Safety Report 6160736-1 (Version None)
Quarter: 2009Q2

REPORT INFORMATION
  Report Type: 
  Country: None (occurrence: None)
  Receive Date: 20090420
  Receipt Date: 20090318
  Transmission Date: 20091009
  Serious: Yes (Other)
  Sender: FDA-Public Use
  Company Number: AU-PFIZER INC-2007077094

PATIENT
  Sex: Female

DRUGS (2)
  1. SALAZOPYRIN [Suspect]
     Dosage: 3 TABLETS OVER A WEEK
  2. METHOTREXATE SODIUM [Suspect]
     Dosage: 4 EVERY 1 WEEKS

REACTIONS (1)
  - SCLERODERMA [None]
